FAERS Safety Report 19982835 (Version 1)
Quarter: 2021Q4

REPORT INFORMATION
  Report Type: Spontaneous
  Country: US (occurrence: US)
  Receive Date: 20211021
  Receipt Date: 20211021
  Transmission Date: 20220303
  Serious: Yes (Hospitalization)
  Sender: FDA-Public Use
  Company Number: None

PATIENT
  Age: 88 Year
  Sex: Female
  Weight: 70.2 kg

DRUGS (8)
  1. REGEN-COV [Suspect]
     Active Substance: CASIRIVIMAB\IMDEVIMAB
     Indication: COVID-19
     Dosage: ?          OTHER FREQUENCY:ONCE;
     Route: 041
     Dates: start: 20211014, end: 20211014
  2. WARFARIN [Concomitant]
     Active Substance: WARFARIN
  3. MAGNESIUM [Concomitant]
     Active Substance: MAGNESIUM
  4. ESTRADIOL [Concomitant]
     Active Substance: ESTRADIOL
  5. METOPROLOL TARTRATE [Concomitant]
     Active Substance: METOPROLOL TARTRATE
  6. AMLODIPINE [Concomitant]
     Active Substance: AMLODIPINE BESYLATE
     Dates: start: 20210416
  7. PROPAFENONE HCL [Concomitant]
     Active Substance: PROPAFENONE HYDROCHLORIDE
     Dates: start: 20191227
  8. cholecalciferol, vitamin D3 [Concomitant]

REACTIONS (3)
  - Chest pain [None]
  - Back pain [None]
  - Blood pressure decreased [None]

NARRATIVE: CASE EVENT DATE: 20211014
